FAERS Safety Report 5658019-9 (Version None)
Quarter: 2008Q1

REPORT INFORMATION
  Report Type: 
  Country: None (occurrence: None)
  Receive Date: 20080306
  Receipt Date: 20080225
  Transmission Date: 20080703
  Serious: Yes (Hospitalization)
  Sender: FDA-Public Use
  Company Number: 231164J08USA

PATIENT
  Age: 34 Year
  Sex: Female
  Weight: 54.4316 kg

DRUGS (1)
  1. REBIF [Suspect]
     Indication: MULTIPLE SCLEROSIS
     Dosage: 44 MCG, 3 IN 7 DAYS, SUBCUTANEOUS
     Route: 058
     Dates: start: 20071126

REACTIONS (2)
  - INJECTION SITE REACTION [None]
  - OVARIAN CYST [None]
